FAERS Safety Report 7413513-5 (Version None)
Quarter: 2011Q2

REPORT INFORMATION
  Report Type: 
  Country: None (occurrence: None)
  Receive Date: 20110413
  Receipt Date: 20110407
  Transmission Date: 20111010
  Serious: Yes (Death)
  Sender: FDA-Public Use
  Company Number: PHHO2011DE06158

PATIENT
  Sex: Female
  Weight: 79 kg

DRUGS (13)
  1. LEVOTHYROXINE SODIUM [Concomitant]
  2. MIRTAZAPINE [Concomitant]
  3. LOSARTAN [Concomitant]
  4. SIMVAR [Concomitant]
  5. SIMVASTATIN [Concomitant]
  6. LAXOBERAL [Concomitant]
  7. PK-MERZ [Concomitant]
  8. FTY [Suspect]
     Dosage: NO TREATMENT
     Dates: start: 20100908, end: 20101012
  9. NEURONTIN [Concomitant]
  10. LYRICA [Concomitant]
  11. FTY [Suspect]
     Indication: MULTIPLE SCLEROSIS
     Dosage: 0.5 MG, QD
     Route: 048
     Dates: start: 20100407, end: 20100907
  12. FTY [Suspect]
     Dosage: 0.5 MG, QD
     Route: 048
     Dates: start: 20101013
  13. URBASON [Concomitant]

REACTIONS (1)
  - MYOCARDIAL INFARCTION [None]
